FAERS Safety Report 21853802 (Version 3)
Quarter: 2023Q1

REPORT INFORMATION
  Report Type: Spontaneous
  Country: FR (occurrence: FR)
  Receive Date: 20230112
  Receipt Date: 20230214
  Transmission Date: 20230417
  Serious: Yes (Other)
  Sender: FDA-Public Use
  Company Number: FR-CELLTRION INC.-2023FR000314

PATIENT

DRUGS (8)
  1. INFLIXIMAB [Suspect]
     Active Substance: INFLIXIMAB
     Indication: Colitis ulcerative
     Dosage: UNK MG
     Route: 058
  2. INFLIXIMAB [Suspect]
     Active Substance: INFLIXIMAB
     Indication: Enterocolitis haemorrhagic
     Dosage: 120 MILLIGRAM, Q2WEEKS
     Route: 058
     Dates: start: 202202
  3. INFLIXIMAB [Suspect]
     Active Substance: INFLIXIMAB
     Dosage: INJECTION OF REMSIMA
     Route: 058
     Dates: start: 20220926
  4. INFLIXIMAB [Suspect]
     Active Substance: INFLIXIMAB
     Dosage: INJECTION OF REMSIMA 3 WEEKS AFTER THE PREVIOUS ONE
     Route: 058
     Dates: start: 20221017
  5. INFLIXIMAB [Suspect]
     Active Substance: INFLIXIMAB
     Dosage: INJECTION AT 5 WEEKS, CLEAR
     Route: 058
     Dates: start: 20221121
  6. INFLIXIMAB [Suspect]
     Active Substance: INFLIXIMAB
     Dosage: INJECTION AT 2 WEEKS, CLEAR
     Route: 058
     Dates: start: 20221205
  7. INFLIXIMAB [Suspect]
     Active Substance: INFLIXIMAB
     Dosage: INJECTION AT 3 WEEKS,  BECAUSE FLU VACCINE ON 17-DEC-2022
     Route: 058
     Dates: start: 20221226
  8. INFLUENZA VIRUS VACCINE [Concomitant]
     Active Substance: INFLUENZA VIRUS VACCINE
     Dosage: UNK
     Dates: start: 20221217

REACTIONS (8)
  - Facial paralysis [Unknown]
  - Facial pain [Unknown]
  - Ear pain [Unknown]
  - Dry eye [Unknown]
  - Herpes zoster [Unknown]
  - Headache [Unknown]
  - Off label use [Unknown]
  - Intentional dose omission [Unknown]

NARRATIVE: CASE EVENT DATE: 20220930
